FAERS Safety Report 9924777 (Version 1)
Quarter: 2014Q1

REPORT INFORMATION
  Report Type: Spontaneous
  Country: US (occurrence: US)
  Receive Date: 20140226
  Receipt Date: 20140226
  Transmission Date: 20141002
  Serious: Yes (Other)
  Sender: FDA-Public Use
  Company Number: US-ROCHE-1354385

PATIENT
  Age: 39 Year
  Sex: Female

DRUGS (6)
  1. PEGASYS [Suspect]
     Indication: CHRONIC HEPATITIS C
     Route: 058
     Dates: start: 20131009, end: 20140219
  2. RIBASPHERE [Suspect]
     Indication: CHRONIC HEPATITIS C
     Route: 048
     Dates: start: 20131009, end: 20140219
  3. INCIVEK [Concomitant]
     Indication: CHRONIC HEPATITIS C
     Route: 048
     Dates: start: 20131009, end: 20140219
  4. SYNTHROID [Concomitant]
     Indication: HYPOTHYROIDISM
     Route: 048
     Dates: start: 20131009
  5. MOTRIN [Concomitant]
     Route: 048
     Dates: start: 20131009
  6. VITAMIN C [Concomitant]
     Route: 048
     Dates: start: 20131009

REACTIONS (5)
  - Full blood count decreased [Not Recovered/Not Resolved]
  - Alopecia [Not Recovered/Not Resolved]
  - Nausea [Not Recovered/Not Resolved]
  - Rash [Not Recovered/Not Resolved]
  - Headache [Not Recovered/Not Resolved]
